FAERS Safety Report 20096986 (Version 1)
Quarter: 2021Q4

REPORT INFORMATION
  Report Type: Spontaneous
  Country: US (occurrence: None)
  Receive Date: 20211122
  Receipt Date: 20211122
  Transmission Date: 20220303
  Serious: No
  Sender: FDA-Public Use
  Company Number: None

PATIENT
  Age: 61 Year
  Sex: Male

DRUGS (1)
  1. FORTEO [Suspect]
     Active Substance: TERIPARATIDE
     Indication: Osteoporosis
     Dosage: OTHER QUANTITY : 20 MCG;?FREQUENCY : DAILY;?
     Route: 058
     Dates: start: 20210928

REACTIONS (3)
  - Pruritus [None]
  - Scab [None]
  - Bone pain [None]

NARRATIVE: CASE EVENT DATE: 20211030
